FAERS Safety Report 16153530 (Version 1)
Quarter: 2019Q2

REPORT INFORMATION
  Report Type: Spontaneous
  Country: JP (occurrence: JP)
  Receive Date: 20190403
  Receipt Date: 20190403
  Transmission Date: 20190711
  Serious: Yes (Hospitalization, Other)
  Sender: FDA-Public Use
  Company Number: JP-LUPIN PHARMACEUTICALS INC.-2019-01930

PATIENT
  Age: 58 Year
  Sex: Male
  Weight: 66.9 kg

DRUGS (15)
  1. LANSOPRAZOLE. [Concomitant]
     Active Substance: LANSOPRAZOLE
     Indication: PRODUCT USED FOR UNKNOWN INDICATION
     Dosage: UNK
     Route: 065
  2. RIFAMPICIN [Interacting]
     Active Substance: RIFAMPIN
     Indication: ADRENAL GLAND TUBERCULOSIS
     Dosage: UNK, THERAPY CONTINUED FOR 6 MONTHS
     Route: 065
  3. PYRAZINAMIDE. [Concomitant]
     Active Substance: PYRAZINAMIDE
     Indication: ADRENAL GLAND TUBERCULOSIS
     Dosage: UNK
     Route: 065
  4. PERINDOPRIL [Concomitant]
     Active Substance: PERINDOPRIL
     Indication: PRODUCT USED FOR UNKNOWN INDICATION
     Route: 065
  5. ISONIAZID. [Concomitant]
     Active Substance: ISONIAZID
     Indication: ADRENAL GLAND TUBERCULOSIS
     Dosage: UNK
     Route: 065
  6. HYDROCORTISONE. [Interacting]
     Active Substance: HYDROCORTISONE
     Dosage: 30 MILLIGRAM, QD (10 MG-10 MG-10 MG AFTER EACH MEAL), TABLET
     Route: 065
  7. ASPIRIN                            /00002701/ [Concomitant]
     Active Substance: ASPIRIN
     Indication: PRODUCT USED FOR UNKNOWN INDICATION
     Dosage: UNK
     Route: 065
  8. CARVEDILOL. [Concomitant]
     Active Substance: CARVEDILOL
     Indication: PRODUCT USED FOR UNKNOWN INDICATION
     Dosage: UNK
     Route: 065
  9. NICORANDIL [Concomitant]
     Active Substance: NICORANDIL
     Indication: PRODUCT USED FOR UNKNOWN INDICATION
     Dosage: UNK
     Route: 065
  10. ETHAMBUTOL [Concomitant]
     Active Substance: ETHAMBUTOL HYDROCHLORIDE
     Indication: ADRENAL GLAND TUBERCULOSIS
     Dosage: UNK
     Route: 065
  11. HYDROCORTISONE. [Interacting]
     Active Substance: HYDROCORTISONE
     Dosage: UNK
     Route: 042
  12. HYDROCORTISONE. [Interacting]
     Active Substance: HYDROCORTISONE
     Dosage: 15 MILLIGRAM, QD ((10 MG-0 MG-5 M), TABLET
     Route: 065
  13. PITAVASTATIN. [Concomitant]
     Active Substance: PITAVASTATIN CALCIUM
     Indication: PRODUCT USED FOR UNKNOWN INDICATION
     Dosage: UNK
     Route: 065
  14. HYDROCORTISONE. [Suspect]
     Active Substance: HYDROCORTISONE
     Indication: ADRENAL GLAND TUBERCULOSIS
     Dosage: 10 MILLIGRAM, TABLET
     Route: 065
  15. HYDROCORTISONE. [Interacting]
     Active Substance: HYDROCORTISONE
     Dosage: 40 MILLIGRAM, QD (20 MG, 10 MG, 10 MG AFTER EACH MEAL), TABLET
     Route: 048

REACTIONS (3)
  - Blood corticotrophin increased [Recovering/Resolving]
  - Diverticulitis [Unknown]
  - Drug interaction [Unknown]
